FAERS Safety Report 14187764 (Version 1)
Quarter: 2017Q4

REPORT INFORMATION
  Report Type: Spontaneous
  Country: FR (occurrence: FR)
  Receive Date: 20171114
  Receipt Date: 20171114
  Transmission Date: 20180321
  Serious: Yes (Other)
  Sender: FDA-Public Use
  Company Number: FR-MERCK KGAA-2034025

PATIENT
  Age: 52 Year
  Sex: Female

DRUGS (1)
  1. NOVOTHYROX [Suspect]
     Active Substance: LEVOTHYROXINE SODIUM
     Indication: PRODUCT USED FOR UNKNOWN INDICATION
     Dates: start: 201707

REACTIONS (14)
  - Exophthalmos [Unknown]
  - Muscle spasms [Unknown]
  - Tachycardia [Unknown]
  - Product taste abnormal [Unknown]
  - Weight increased [Unknown]
  - Vomiting [Unknown]
  - Anxiety [Unknown]
  - Nervousness [Unknown]
  - Palpitations [Unknown]
  - Eating disorder [Unknown]
  - Irritability [Unknown]
  - Hypertrichosis [Unknown]
  - Dysphagia [Unknown]
  - Nausea [Unknown]

NARRATIVE: CASE EVENT DATE: 201707
